FAERS Safety Report 7558198-2 (Version None)
Quarter: 2011Q2

REPORT INFORMATION
  Report Type: 
  Country: None (occurrence: None)
  Receive Date: 20110620
  Receipt Date: 20110614
  Transmission Date: 20111010
  Serious: Yes (Hospitalization)
  Sender: FDA-Public Use
  Company Number: AU-PFIZER INC-2011129321

PATIENT
  Age: 21 Year
  Sex: Female

DRUGS (4)
  1. PANADEINE FORTE [Suspect]
  2. ALPRAZOLAM [Suspect]
     Dosage: 4 MG, UNK
  3. ALCOHOL [Suspect]
  4. CANNABIS [Suspect]
     Dosage: 2 G, 1X/DAY

REACTIONS (1)
  - DRUG ABUSE [None]
